FAERS Safety Report 7220374-6 (Version None)
Quarter: 2011Q1

REPORT INFORMATION
  Report Type: 
  Country: None (occurrence: None)
  Receive Date: 20110111
  Receipt Date: 20101228
  Transmission Date: 20110831
  Serious: No
  Sender: FDA-Public Use
  Company Number: US-B.I. PHARMACEUTICALS,INC./RIDGEFIELD-2011-BP-00144BP

PATIENT
  Sex: Female

DRUGS (7)
  1. PRADAXA [Suspect]
     Indication: ATRIAL FIBRILLATION
     Dosage: 300 MG
     Route: 048
     Dates: start: 20101223, end: 20101226
  2. POTASSIUM CHLORIDE [Concomitant]
     Indication: MINERAL SUPPLEMENTATION
     Dosage: 10 MEQ
     Route: 048
  3. BUMEX [Concomitant]
     Indication: HYPERTENSION
     Dosage: 0.25 MG
     Route: 048
  4. DIGOXIN [Concomitant]
     Indication: CARDIAC VALVE DISEASE
     Dosage: 0.125 MG
     Route: 048
     Dates: start: 20090101
  5. LORATADINE [Concomitant]
     Indication: SEASONAL ALLERGY
     Dosage: 10 MG
     Route: 048
  6. DIOVAN [Concomitant]
     Indication: HYPERTENSION
     Dosage: 300 MG
     Route: 048
  7. LEVOTHYROXINE SODIUM [Concomitant]
     Indication: THYROID DISORDER
     Dosage: 0.25
     Route: 048
     Dates: start: 20090101

REACTIONS (3)
  - INSOMNIA [None]
  - DYSPEPSIA [None]
  - OESOPHAGEAL PAIN [None]
